FAERS Safety Report 15338769 (Version 3)
Quarter: 2018Q3

REPORT INFORMATION
  Report Type: Spontaneous
  Country: US (occurrence: US)
  Receive Date: 20180831
  Receipt Date: 20180928
  Transmission Date: 20181010
  Serious: No
  Sender: FDA-Public Use
  Company Number: US-PFIZER INC-2018351348

PATIENT
  Age: 70 Year
  Sex: Female
  Weight: 79.82 kg

DRUGS (2)
  1. LETROZOLE. [Suspect]
     Active Substance: LETROZOLE
     Dosage: UNK
  2. IBRANCE [Suspect]
     Active Substance: PALBOCICLIB
     Indication: BREAST CANCER METASTATIC
     Dosage: 125 MG, CYCLIC(DAYS1?21Q28 DAYS)
     Route: 048
     Dates: start: 20180807

REACTIONS (17)
  - Arthralgia [Unknown]
  - Dyspnoea exertional [Unknown]
  - Vision blurred [Not Recovered/Not Resolved]
  - Headache [Unknown]
  - Parosmia [Unknown]
  - Cough [Unknown]
  - Blood count abnormal [Unknown]
  - Musculoskeletal chest pain [Unknown]
  - Myalgia [Unknown]
  - Productive cough [Unknown]
  - Regurgitation [Unknown]
  - White blood cell count decreased [Unknown]
  - Dizziness [Unknown]
  - Nausea [Unknown]
  - Fatigue [Unknown]
  - Contusion [Unknown]
  - Pruritus [Unknown]

NARRATIVE: CASE EVENT DATE: 20180919
